FAERS Safety Report 8601929-0 (Version None)
Quarter: 2012Q3

REPORT INFORMATION
  Report Type: 
  Country: None (occurrence: None)
  Receive Date: 20120817
  Receipt Date: 20120531
  Transmission Date: 20120928
  Serious: No
  Sender: FDA-Public Use
  Company Number: US-BRISTOL-MYERS SQUIBB COMPANY-16651366

PATIENT
  Age: 47 Year
  Sex: Female
  Weight: 70 kg

DRUGS (4)
  1. SPRYCEL [Suspect]
     Indication: CHRONIC MYELOID LEUKAEMIA
     Dates: start: 20120216
  2. ZOLPIDEM [Concomitant]
  3. VITAMIN B-12 [Concomitant]
  4. SERTRALINE HYDROCHLORIDE [Concomitant]

REACTIONS (2)
  - SWOLLEN TONGUE [None]
  - PARAESTHESIA [None]
